FAERS Safety Report 8756190 (Version 1)
Quarter: 2012Q4

REPORT INFORMATION
  Report Type: 
  Country: US (occurrence: US)
  Receive Date: 20120828
  Receipt Date: 20120828
  Transmission Date: 20130627
  Serious: No
  Sender: FDA-Public Use
  Company Number: US-B.I. PHARMACEUTICALS,INC./RIDGEFIELD-2012-BP-20812BP

PATIENT

DRUGS (2)
  1. TRADJENTA [Suspect]
     Route: 048
  2. INSULIN PUMP [Concomitant]
     Route: 058

REACTIONS (1)
  - Diarrhoea [Recovered/Resolved]
